FAERS Safety Report 9870248 (Version 1)
Quarter: 2014Q1

REPORT INFORMATION
  Report Type: Spontaneous
  Country: CL (occurrence: CL)
  Receive Date: 20140205
  Receipt Date: 20140205
  Transmission Date: 20141002
  Serious: Yes (Other)
  Sender: FDA-Public Use
  Company Number: CL-PFIZER INC-2014029236

PATIENT
  Age: 55 Year
  Sex: Female

DRUGS (11)
  1. AZULFIDINE [Suspect]
     Indication: COLITIS ULCERATIVE
     Dosage: 500 MG, 3 TABLET EVERY 8 HOURS (9 TABLET PER DAY)
     Route: 048
     Dates: start: 1994
  2. AZULFIDINE [Suspect]
     Indication: CROHN^S DISEASE
  3. PREDNISONE [Concomitant]
     Dosage: 5 MG, 2X/DAY
  4. TENSODOX [Concomitant]
     Dosage: UNK
  5. TOCOPHERYL ACETATE [Concomitant]
     Dosage: 400 MG, 1X/DAY
  6. ACTONEL [Concomitant]
     Dosage: 1 TABLET MONTHLY
  7. FOLIC ACID [Concomitant]
     Dosage: 1 TABLET PER DAY
  8. SERTRALINE HYDROCHLORIDE [Concomitant]
     Dosage: 1 TABLET PER DAY
  9. ALPRAZOLAM [Concomitant]
     Dosage: 1/2 TABLET AT MORNING AND 1/2 TABLET AT NIGHT
  10. TRAMAL [Concomitant]
     Dosage: 1 TABLET PER DAY
  11. LOSEC [Concomitant]
     Dosage: UNK

REACTIONS (6)
  - Crohn^s disease [Not Recovered/Not Resolved]
  - Hernia [Not Recovered/Not Resolved]
  - Osteoporosis [Not Recovered/Not Resolved]
  - Arthralgia [Not Recovered/Not Resolved]
  - Inflammation [Not Recovered/Not Resolved]
  - Pulmonary mass [Not Recovered/Not Resolved]
